FAERS Safety Report 7807094-1 (Version None)
Quarter: 2011Q4

REPORT INFORMATION
  Report Type: 
  Country: None (occurrence: None)
  Receive Date: 20111011
  Receipt Date: 20111006
  Transmission Date: 20120403
  Serious: Yes (Death, Hospitalization)
  Sender: FDA-Public Use
  Company Number: PHHY2011ES89187

PATIENT

DRUGS (4)
  1. LEUCOVORIN CALCIUM [Concomitant]
  2. FOLIDAN [Concomitant]
     Dosage: UNK
     Dates: start: 20101122, end: 20101122
  3. OXALIPLATIN [Suspect]
     Indication: COLON CANCER STAGE IV
     Dosage: UNK
     Dates: start: 20101122, end: 20101122
  4. FLUOROURACIL [Suspect]
     Indication: COLON CANCER STAGE IV
     Dosage: UNK
     Route: 042
     Dates: start: 20101122, end: 20101122

REACTIONS (2)
  - DEATH [None]
  - THROMBOCYTOPENIA [None]
